FAERS Safety Report 20723733 (Version 9)
Quarter: 2023Q1

REPORT INFORMATION
  Report Type: Report from Study
  Country: CA (occurrence: CA)
  Receive Date: 20220419
  Receipt Date: 20230321
  Transmission Date: 20230418
  Serious: Yes (Other)
  Sender: FDA-Public Use
  Company Number: CA-JNJFOC-20220428521

PATIENT
  Age: 63 Year
  Sex: Female

DRUGS (2)
  1. REMICADE [Suspect]
     Active Substance: INFLIXIMAB
     Indication: Scleritis
     Dosage: EXPIRY DATE: 31-OCT-2024, 31-JAN-2025, V6: THERAPY START DATE GIVEN AS 03-OCT-2022, EXPIRATION DATE:
     Route: 041
  2. REMICADE [Suspect]
     Active Substance: INFLIXIMAB
     Route: 041

REACTIONS (8)
  - Scleritis [Not Recovered/Not Resolved]
  - Skin cancer [Not Recovered/Not Resolved]
  - Osteonecrosis [Recovered/Resolved]
  - Uterine polyp [Recovered/Resolved]
  - Toe operation [Recovering/Resolving]
  - Ear infection [Recovered/Resolved]
  - Vertigo [Recovering/Resolving]
  - Pain in extremity [Recovered/Resolved]

NARRATIVE: CASE EVENT DATE: 20220101
